FAERS Safety Report 4989189-3 (Version None)
Quarter: 2006Q1

REPORT INFORMATION
  Report Type: 
  Country: None (occurrence: None)
  Receive Date: 20060309
  Receipt Date: 20051110
  Transmission Date: 20060701
  Serious: Yes (Other)
  Sender: FDA-Public Use
  Company Number: 424781

PATIENT

DRUGS (5)
  1. ACCUTANE [Suspect]
     Indication: ACNE
     Dosage: 80 MG DAILY ORAL
     Route: 048
     Dates: start: 19970617, end: 19971015
  2. TRAZODONE HCL [Concomitant]
  3. LEXAPRO [Concomitant]
  4. SKELAXIN [Concomitant]
  5. ALTACE [Concomitant]

REACTIONS (1)
  - PREGNANCY [None]
